FAERS Safety Report 18950049 (Version 2)
Quarter: 2021Q1

REPORT INFORMATION
  Report Type: Spontaneous
  Country: US (occurrence: US)
  Receive Date: 20210228
  Receipt Date: 20210311
  Transmission Date: 20210420
  Serious: No
  Sender: FDA-Public Use
  Company Number: US-ORGANON-O2102USA007689

PATIENT
  Age: 19 Year
  Sex: Female
  Weight: 96.16 kg

DRUGS (1)
  1. NEXPLANON [Suspect]
     Active Substance: ETONOGESTREL
     Dosage: 1 DOSAGE FORM; LEFT ARM; ^ABOUT 2 YEARS AGO^
     Route: 059
     Dates: start: 2019

REACTIONS (4)
  - Injury [Unknown]
  - Vaginal haemorrhage [Unknown]
  - Device kink [Not Recovered/Not Resolved]
  - Implant site pain [Unknown]

NARRATIVE: CASE EVENT DATE: 2019
